FAERS Safety Report 19600467 (Version 4)
Quarter: 2021Q3

REPORT INFORMATION
  Report Type: Spontaneous
  Country: BR (occurrence: BR)
  Receive Date: 20210722
  Receipt Date: 20210812
  Transmission Date: 20211014
  Serious: Yes (Other)
  Sender: FDA-Public Use
  Company Number: BR-009507513-2107BRA006680

PATIENT
  Sex: Female

DRUGS (2)
  1. JANUMET [Suspect]
     Active Substance: METFORMIN HYDROCHLORIDE\SITAGLIPTIN PHOSPHATE
     Dosage: 50/850 MG, TWICE A DAY
     Route: 048
     Dates: end: 2018
  2. JANUVIA [Suspect]
     Active Substance: SITAGLIPTIN PHOSPHATE
     Dosage: 1 TABLET (100 MG), TWICE A DAY (PREVIOUS REPORTED AS 200 MG DAILY DOSE)
     Route: 048
     Dates: start: 2018

REACTIONS (4)
  - Product prescribing error [Unknown]
  - Pancreatic carcinoma [Not Recovered/Not Resolved]
  - Incorrect dose administered [Unknown]
  - Gastric disorder [Unknown]

NARRATIVE: CASE EVENT DATE: 2018
